FAERS Safety Report 15929216 (Version 1)
Quarter: 2019Q1

REPORT INFORMATION
  Report Type: Spontaneous
  Country: DE (occurrence: DE)
  Receive Date: 20190206
  Receipt Date: 20190206
  Transmission Date: 20190417
  Serious: Yes (Death, Hospitalization, Other)
  Sender: FDA-Public Use
  Company Number: DE-B.I. PHARMACEUTICALS,INC./RIDGEFIELD-2019-12-000438

PATIENT
  Age: 64 Year
  Sex: Male
  Weight: 94 kg

DRUGS (1)
  1. JARDIANCE [Suspect]
     Active Substance: EMPAGLIFLOZIN
     Indication: TYPE 2 DIABETES MELLITUS
     Dosage: 10 MG 1X DAILY
     Route: 048
     Dates: start: 201602, end: 20181227

REACTIONS (8)
  - Mechanical ventilation [Unknown]
  - Circulatory collapse [Unknown]
  - Surgery [Unknown]
  - Hepatic failure [Unknown]
  - Sepsis [Fatal]
  - Fournier^s gangrene [Fatal]
  - Renal failure [Unknown]
  - Bedridden [Unknown]

NARRATIVE: CASE EVENT DATE: 201812
